FAERS Safety Report 8194733-1 (Version None)
Quarter: 2012Q1

REPORT INFORMATION
  Report Type: 
  Country: None (occurrence: None)
  Receive Date: 20120308
  Receipt Date: 20110221
  Transmission Date: 20120608
  Serious: No
  Sender: FDA-Public Use
  Company Number: US-GLAXOSMITHKLINE-A0914603A

PATIENT
  Age: 60 Year
  Sex: Female

DRUGS (1)
  1. NICORETTE [Suspect]
     Indication: EX-TOBACCO USER
     Dates: start: 20110221

REACTIONS (6)
  - DYSPNOEA [None]
  - WHEEZING [None]
  - MALAISE [None]
  - NAUSEA [None]
  - ABDOMINAL DISTENSION [None]
  - COUGH [None]
